FAERS Safety Report 9290731 (Version 3)
Quarter: 2013Q3

REPORT INFORMATION
  Report Type: Spontaneous
  Country: JP (occurrence: JP)
  Receive Date: 20130515
  Receipt Date: 20130807
  Transmission Date: 20140515
  Serious: Yes (Hospitalization, Other)
  Sender: FDA-Public Use
  Company Number: PHHY2013JP046638

PATIENT
  Age: 39 Year
  Sex: Male

DRUGS (6)
  1. NEORAL [Suspect]
     Indication: RENAL TRANSPLANT
     Route: 048
  2. CERTICAN [Suspect]
     Indication: RENAL TRANSPLANT
     Route: 048
  3. SIMULECT [Suspect]
     Indication: RENAL TRANSPLANT
     Route: 041
  4. MIZORIBINE [Concomitant]
     Indication: RENAL TRANSPLANT
  5. PREDNISOLONE [Concomitant]
     Indication: RENAL TRANSPLANT
  6. MIDAZOLAM [Concomitant]

REACTIONS (2)
  - Diabetes mellitus [Recovering/Resolving]
  - Nephropathy [Recovering/Resolving]
